FAERS Safety Report 4563032-9 (Version None)
Quarter: 2005Q1

REPORT INFORMATION
  Report Type: 
  Country: None (occurrence: None)
  Receive Date: 20050126
  Receipt Date: 20050110
  Transmission Date: 20050727
  Serious: Yes (Other)
  Sender: FDA-Public Use
  Company Number: TRP_0022_2004

PATIENT
  Sex: Female

DRUGS (1)
  1. RIBASPHERE [Suspect]

REACTIONS (15)
  - BLOOD GLUCOSE DECREASED [None]
  - CONDITION AGGRAVATED [None]
  - CONFUSIONAL STATE [None]
  - DIARRHOEA [None]
  - DIZZINESS [None]
  - DYSPNOEA [None]
  - HAEMOGLOBIN DECREASED [None]
  - HEADACHE [None]
  - HUNGER [None]
  - HYPOTRICHOSIS [None]
  - PRURITUS [None]
  - PYREXIA [None]
  - RHEUMATOID ARTHRITIS [None]
  - TREMOR [None]
  - WHITE BLOOD CELL COUNT DECREASED [None]
